FAERS Safety Report 6640137-X (Version None)
Quarter: 2010Q1

REPORT INFORMATION
  Report Type: 
  Country: None (occurrence: None)
  Receive Date: 20100302
  Receipt Date: 20091210
  Transmission Date: 20100710
  Serious: No
  Sender: FDA-Public Use
  Company Number: 2009281153

PATIENT
  Age: 68 Year
  Sex: Female
  Weight: 63.9 kg

DRUGS (7)
  1. TOVIAZ [Suspect]
     Dosage: 4 MG, 1X/DAY
  2. DETROL LA [Suspect]
     Dosage: 4 MG, 1X/DAY, ORAL
     Route: 048
     Dates: start: 20010101, end: 20090901
  3. DARIFENACIN HYDROBROMIDE [Suspect]
     Dosage: ORAL
     Route: 048
  4. EVISTA [Concomitant]
  5. DIOVAN HCT [Concomitant]
  6. SYNTHROID [Concomitant]
  7. MELOXICAM [Concomitant]

REACTIONS (4)
  - CHAPPED LIPS [None]
  - CHEILITIS [None]
  - DRUG INEFFECTIVE [None]
  - DRY MOUTH [None]
